FAERS Safety Report 10240726 (Version 1)
Quarter: 2014Q2

REPORT INFORMATION
  Report Type: Spontaneous
  Country: IR (occurrence: IR)
  Receive Date: 20140617
  Receipt Date: 20140617
  Transmission Date: 20141212
  Serious: Yes (Other)
  Sender: FDA-Public Use
  Company Number: IR-MYLANLABS-2014S1013527

PATIENT
  Age: 36 Year
  Sex: Male

DRUGS (6)
  1. CEFTRIAXONE [Suspect]
     Route: 042
  2. CLINDAMYCIN [Suspect]
     Route: 065
  3. ISONIAZID [Suspect]
     Indication: DISSEMINATED TUBERCULOSIS
     Dosage: 300MG DAILY
     Route: 065
  4. RIFAMPICIN [Suspect]
     Indication: DISSEMINATED TUBERCULOSIS
     Dosage: 600MG DAILY
     Route: 065
  5. ETHAMBUTOL [Suspect]
     Indication: DISSEMINATED TUBERCULOSIS
     Dosage: 800MG DAILY
     Route: 065
  6. PYRAZINAMIDE [Suspect]
     Indication: DISSEMINATED TUBERCULOSIS
     Dosage: 1250MG DAILY
     Route: 065

REACTIONS (1)
  - Drug-induced liver injury [Recovering/Resolving]
